FAERS Safety Report 9717784 (Version 2)
Quarter: 2013Q4

REPORT INFORMATION
  Report Type: Spontaneous
  Country: JP (occurrence: JP)
  Receive Date: 20131127
  Receipt Date: 20131231
  Transmission Date: 20140711
  Serious: Yes (Other)
  Sender: FDA-Public Use
  Company Number: JP-GLAXOSMITHKLINE-B0948012A

PATIENT
  Age: 77 Year
  Sex: Male

DRUGS (5)
  1. REQUIP [Suspect]
     Indication: PARKINSON^S DISEASE
     Dosage: 2MG TWICE PER DAY
     Route: 048
     Dates: start: 20131113
  2. REQUIP [Suspect]
     Indication: PARKINSON^S DISEASE
     Dosage: 2MG TWICE PER DAY
     Route: 048
     Dates: start: 20130405, end: 20131112
  3. MENESIT [Concomitant]
     Indication: PARKINSON^S DISEASE
     Dosage: 100MG TWICE PER DAY
     Route: 048
     Dates: start: 20111026
  4. GASMOTIN [Concomitant]
     Indication: ABDOMINAL DISCOMFORT
     Dosage: 5MG TWICE PER DAY
     Route: 048
     Dates: start: 20120131
  5. OMEPRAL [Concomitant]
     Indication: ABDOMINAL DISCOMFORT
     Dosage: 20MG PER DAY
     Route: 048
     Dates: start: 20111219

REACTIONS (1)
  - Haemorrhage subcutaneous [Unknown]
